FAERS Safety Report 23140506 (Version 1)
Quarter: 2023Q4

REPORT INFORMATION
  Report Type: Spontaneous
  Country: TR (occurrence: TR)
  Receive Date: 20231102
  Receipt Date: 20231102
  Transmission Date: 20240109
  Serious: No
  Sender: FDA-Public Use
  Company Number: TR-SCALL-2023-TRK-144968

PATIENT

DRUGS (1)
  1. DUTASTERIDE [Suspect]
     Active Substance: DUTASTERIDE
     Route: 065

REACTIONS (3)
  - Blood testosterone decreased [Unknown]
  - Bone disorder [Unknown]
  - Therapeutic response decreased [Unknown]
